FAERS Safety Report 23216318 (Version 2)
Quarter: 2023Q4

REPORT INFORMATION
  Report Type: Report from Study
  Country: MX (occurrence: MX)
  Receive Date: 20231122
  Receipt Date: 20231125
  Transmission Date: 20240109
  Serious: Yes (Death)
  Sender: FDA-Public Use
  Company Number: MX-002147023-NVSC2023MX248267

PATIENT
  Age: 69 Year
  Sex: Male
  Weight: 102 kg

DRUGS (2)
  1. ENTRESTO [Suspect]
     Active Substance: SACUBITRIL\VALSARTAN
     Indication: Cardiac disorder
     Dosage: 1 DOSAGE FORM, BID
     Route: 048
     Dates: start: 202302
  2. ENTRESTO [Suspect]
     Active Substance: SACUBITRIL\VALSARTAN
     Indication: Hypertension

REACTIONS (3)
  - Cardio-respiratory arrest [Fatal]
  - Cardiac failure [Fatal]
  - Off label use [Unknown]

NARRATIVE: CASE EVENT DATE: 20230201
